FAERS Safety Report 4999442-5 (Version None)
Quarter: 2006Q2

REPORT INFORMATION
  Report Type: 
  Country: None (occurrence: None)
  Receive Date: 20060509
  Receipt Date: 20060509
  Transmission Date: 20061013
  Serious: Yes (Hospitalization)
  Sender: FDA-Public Use
  Company Number: None

PATIENT
  Age: 67 Year
  Sex: Male
  Weight: 166.7 kg

DRUGS (15)
  1. LINEZOLID [Suspect]
     Indication: CELLULITIS STAPHYLOCOCCAL
     Dosage: 600MG PO BID
     Route: 048
     Dates: start: 20050301, end: 20050501
  2. LINEZOLID [Suspect]
     Indication: CELLULITIS STAPHYLOCOCCAL
     Dosage: 600MG PO BID
     Route: 048
     Dates: start: 20050701, end: 20051201
  3. REGULAR INSULIN [Concomitant]
  4. ARICEPT [Concomitant]
  5. EFFEXOR [Concomitant]
  6. LOPRESSOR [Concomitant]
  7. POTASSIUM CHLORIDE [Concomitant]
  8. NORVASC [Concomitant]
  9. LASIX [Concomitant]
  10. ALTACE [Concomitant]
  11. PLAVIX [Concomitant]
  12. DIGOXIN [Concomitant]
  13. FOLIC ACID [Concomitant]
  14. ASPIRIN [Concomitant]
  15. COLACE [Concomitant]

REACTIONS (3)
  - CELLULITIS STAPHYLOCOCCAL [None]
  - FACIAL PARESIS [None]
  - PERIPHERAL SENSORY NEUROPATHY [None]
